FAERS Safety Report 6327261-6 (Version None)
Quarter: 2009Q3

REPORT INFORMATION
  Report Type: 
  Country: None (occurrence: None)
  Receive Date: 20090825
  Receipt Date: 20090819
  Transmission Date: 20100115
  Serious: Yes (Death, Life-Threatening)
  Sender: FDA-Public Use
  Company Number: JP-JNJFOC-20090807374

PATIENT
  Sex: Male
  Weight: 87 kg

DRUGS (57)
  1. ITRIZOLE [Suspect]
     Indication: PROPHYLAXIS
     Route: 048
  2. VELCADE [Suspect]
     Dosage: 2 CYCLE
     Route: 042
  3. VELCADE [Suspect]
     Dosage: 2 CYCLE
     Route: 042
  4. VELCADE [Suspect]
     Dosage: 2 CYCLE
     Route: 042
  5. VELCADE [Suspect]
     Dosage: 2 CYCLE
     Route: 042
  6. VELCADE [Suspect]
     Dosage: 1 CYCLE
     Route: 042
  7. VELCADE [Suspect]
     Dosage: 1 CYCLE
     Route: 042
  8. VELCADE [Suspect]
     Dosage: 1 CYCLE
     Route: 042
  9. VELCADE [Suspect]
     Indication: MULTIPLE MYELOMA
     Dosage: 1 CYCLE
     Route: 042
  10. DEXART [Suspect]
     Route: 042
  11. DEXART [Suspect]
     Indication: MULTIPLE MYELOMA
     Route: 042
  12. CALONAL [Suspect]
     Indication: PROPHYLAXIS
     Route: 048
  13. DECADRON [Concomitant]
     Indication: MULTIPLE MYELOMA
     Route: 048
  14. STRONGER NEO MINOPHAGEN C [Concomitant]
     Route: 042
  15. STRONGER NEO MINOPHAGEN C [Concomitant]
     Indication: LIVER DISORDER
     Route: 042
  16. MAXIPIME [Concomitant]
     Route: 042
  17. MAXIPIME [Concomitant]
     Indication: PNEUMONIA
     Route: 042
  18. SAXIZON [Concomitant]
     Route: 042
  19. SAXIZON [Concomitant]
     Route: 042
  20. SAXIZON [Concomitant]
     Indication: PROPHYLAXIS
     Route: 042
  21. POLARAMINE [Concomitant]
     Route: 042
  22. POLARAMINE [Concomitant]
     Indication: PROPHYLAXIS
     Route: 042
  23. ACYCLOVIR [Concomitant]
     Indication: PROPHYLAXIS
     Route: 041
  24. OMEPRAL [Concomitant]
     Indication: PROPHYLAXIS
     Route: 048
  25. OXYCONTIN [Concomitant]
     Indication: PROPHYLAXIS
     Route: 048
  26. LUPRAC [Concomitant]
     Indication: PROPHYLAXIS
     Route: 048
  27. ELASE [Concomitant]
     Indication: PROPHYLAXIS
     Route: 061
  28. XYLOCAINE [Concomitant]
     Indication: PROPHYLAXIS
     Route: 049
  29. LEVOFLOXACIN [Concomitant]
     Indication: PROPHYLAXIS
     Route: 048
  30. CORTRIL [Concomitant]
     Indication: PROPHYLAXIS
     Route: 048
  31. SLOW-K [Concomitant]
     Indication: PROPHYLAXIS
     Route: 048
  32. NEUROTROPIN [Concomitant]
     Route: 048
  33. NOZLEN [Concomitant]
     Indication: PROPHYLAXIS
     Route: 048
  34. VALTREX [Concomitant]
     Route: 048
  35. VALTREX [Concomitant]
     Indication: PROPHYLAXIS
     Dosage: 2-6 DF /DAY
     Route: 048
  36. BIOFERMIN R [Concomitant]
     Route: 048
  37. PURSENNID [Concomitant]
     Indication: PROPHYLAXIS
     Route: 048
  38. LAXOBERON [Concomitant]
     Route: 048
  39. LAXOBERON [Concomitant]
     Indication: PROPHYLAXIS
     Route: 048
  40. LIORESAL [Concomitant]
     Indication: PROPHYLAXIS
     Route: 048
  41. RIVOTRIL [Concomitant]
     Indication: PROPHYLAXIS
     Route: 048
  42. LENDORMIN [Concomitant]
     Indication: PROPHYLAXIS
     Route: 048
  43. DEXAMETHASONE [Concomitant]
     Route: 042
  44. BIOFERMIN [Concomitant]
     Indication: PROPHYLAXIS
     Route: 048
  45. MS REISHIPPU [Concomitant]
     Indication: PROPHYLAXIS
     Route: 062
  46. ZYLORIC [Concomitant]
     Indication: PROPHYLAXIS
     Route: 048
  47. GABAPEN [Concomitant]
     Indication: PROPHYLAXIS
     Route: 048
  48. ZOMETA [Concomitant]
     Indication: PROPHYLAXIS
     Route: 041
  49. CEFAMEZIN [Concomitant]
     Indication: PROPHYLAXIS
     Route: 042
  50. VANCOMYCIN [Concomitant]
     Indication: PROPHYLAXIS
     Route: 041
  51. MIXED AMINO ACID CARBOHYDRATE ELECTROLYTE VITAMIN COMBINED DRUG [Concomitant]
     Indication: PROPHYLAXIS
     Route: 041
  52. MEROPENEM TRIHYDRATE [Concomitant]
     Indication: PROPHYLAXIS
     Route: 041
  53. POTASSIUM CHLORIDE [Concomitant]
     Indication: PROPHYLAXIS
     Route: 042
  54. NEU-UP [Concomitant]
     Indication: PROPHYLAXIS
     Route: 042
  55. LASTET S [Concomitant]
     Indication: PROPHYLAXIS
     Route: 048
  56. OXYNORM [Concomitant]
     Indication: PROPHYLAXIS
     Route: 048
  57. AZUNOL [Concomitant]
     Indication: PROPHYLAXIS
     Route: 061

REACTIONS (2)
  - DEATH [None]
  - LIVER DISORDER [None]
